FAERS Safety Report 21897403 (Version 2)
Quarter: 2023Q1

REPORT INFORMATION
  Report Type: Spontaneous
  Country: US (occurrence: US)
  Receive Date: 20230123
  Receipt Date: 20230124
  Transmission Date: 20230418
  Serious: No
  Sender: FDA-Public Use
  Company Number: US-PFIZER INC-202300029195

PATIENT
  Age: 47 Year
  Sex: Female
  Weight: 74.84 kg

DRUGS (3)
  1. EUCRISA [Suspect]
     Active Substance: CRISABOROLE
     Indication: Dermatitis
     Dosage: 2X/DAY
     Route: 061
     Dates: start: 20230114
  2. EUCRISA [Suspect]
     Active Substance: CRISABOROLE
     Dosage: 1X/DAY
  3. ZIPRASIDONE [Concomitant]
     Active Substance: ZIPRASIDONE
     Indication: Bipolar disorder
     Dosage: 40 MG, 1X/DAY

REACTIONS (2)
  - Application site pain [Not Recovered/Not Resolved]
  - Intentional product misuse [Unknown]

NARRATIVE: CASE EVENT DATE: 20230101
